FAERS Safety Report 14681024 (Version 2)
Quarter: 2018Q2

REPORT INFORMATION
  Report Type: Spontaneous
  Country: US (occurrence: US)
  Receive Date: 20180326
  Receipt Date: 20180516
  Transmission Date: 20180711
  Serious: Yes (Hospitalization, Other)
  Sender: FDA-Public Use
  Company Number: US-009507513-1803USA010624

PATIENT
  Sex: Male
  Weight: 77.1 kg

DRUGS (10)
  1. QVAR [Concomitant]
     Active Substance: BECLOMETHASONE DIPROPIONATE
  2. INTRON A [Suspect]
     Active Substance: INTERFERON ALFA-2B
     Indication: HEPATIC CANCER
     Dosage: 0.05 ML, 3 TIMES WEEKLY
     Route: 023
     Dates: start: 201802
  3. POTASSIUM (UNSPECIFIED) [Concomitant]
     Active Substance: POTASSIUM
  4. ZOLPIDEM TARTRATE. [Concomitant]
     Active Substance: ZOLPIDEM TARTRATE
  5. NEXAVAR [Suspect]
     Active Substance: SORAFENIB
  6. AMLODIPINE BESYLATE. [Concomitant]
     Active Substance: AMLODIPINE BESYLATE
  7. COZAAR [Concomitant]
     Active Substance: LOSARTAN POTASSIUM
  8. TRIAMTERENE. [Concomitant]
     Active Substance: TRIAMTERENE
  9. CODEINE (+) GUAIFENESIN [Concomitant]
     Dosage: 10-100 M
  10. ENTECAVIR. [Concomitant]
     Active Substance: ENTECAVIR

REACTIONS (4)
  - Insomnia [Unknown]
  - Gait disturbance [Recovering/Resolving]
  - Spinal cord neoplasm [Recovering/Resolving]
  - Tumour pain [Recovering/Resolving]

NARRATIVE: CASE EVENT DATE: 2018
